FAERS Safety Report 13264707 (Version 1)
Quarter: 2017Q1

REPORT INFORMATION
  Report Type: Spontaneous
  Country: US (occurrence: US)
  Receive Date: 20170223
  Receipt Date: 20170223
  Transmission Date: 20170428
  Serious: Yes (Other)
  Sender: FDA-Public Use
  Company Number: None

PATIENT
  Age: 11 Year
  Sex: Male
  Weight: 38.25 kg

DRUGS (7)
  1. OSELTAMIVIR PHOSPHATE CASULES US [Suspect]
     Active Substance: OSELTAMIVIR PHOSPHATE
     Indication: INFLUENZA
     Dosage: ?          QUANTITY:1 CAPSULE(S);?
     Route: 048
     Dates: start: 20170222, end: 20170222
  2. VITAMIN C SUPPLEMENT [Concomitant]
  3. OMNIPOD [Concomitant]
  4. MOTRIN [Concomitant]
     Active Substance: IBUPROFEN
  5. TYLENOL [Concomitant]
     Active Substance: ACETAMINOPHEN
  6. KIDS MULTI-VITAMINS [Concomitant]
  7. NOVOLOG [Concomitant]
     Active Substance: INSULIN ASPART

REACTIONS (7)
  - Confusional state [None]
  - Tremor [None]
  - Aggression [None]
  - Pyrexia [None]
  - Obsessive thoughts [None]
  - Screaming [None]
  - Enuresis [None]

NARRATIVE: CASE EVENT DATE: 20170222
